FAERS Safety Report 8217638-6 (Version None)
Quarter: 2012Q1

REPORT INFORMATION
  Report Type: 
  Country: None (occurrence: None)
  Receive Date: 20120314
  Receipt Date: 20120303
  Transmission Date: 20120608
  Serious: Yes (Hospitalization)
  Sender: FDA-Public Use
  Company Number: 2012AP000670

PATIENT
  Age: 39 Year
  Sex: Male

DRUGS (8)
  1. ACENOCOUMAROL (ACENOCOUMAROL) [Concomitant]
  2. LOSARTAN POTASSIUM [Concomitant]
  3. AMLODIPINE [Concomitant]
  4. OMEPRAZOLE [Suspect]
     Indication: PRODUCT USED FOR UNKNOWN INDICATION
     Dosage: 40 MG;UNKNOWN;QD
  5. HYDROCHLOROTHIAZIDE [Concomitant]
  6. SIMVASTATIN [Concomitant]
  7. ASPIRIN [Concomitant]
  8. ATENOLOL [Concomitant]

REACTIONS (6)
  - HYPOMAGNESAEMIA [None]
  - HYPOCALCAEMIA [None]
  - HYPOKALAEMIA [None]
  - HYPOAESTHESIA [None]
  - MUSCLE TWITCHING [None]
  - LACTOSE INTOLERANCE [None]
